FAERS Safety Report 4400897-5 (Version None)
Quarter: 2004Q3

REPORT INFORMATION
  Report Type: 
  Country: None (occurrence: None)
  Receive Date: 20040907
  Receipt Date: 20030730
  Transmission Date: 20050211
  Serious: No
  Sender: FDA-Public Use
  Company Number: US-BRISTOL-MYERS SQUIBB COMPANY-12340436

PATIENT
  Age: 70 Year
  Sex: Male
  Weight: 85 kg

DRUGS (1)
  1. COUMADIN [Suspect]
     Indication: THROMBOSIS
     Dosage: DOSE VALUE:  5 MG FOUR TIMES A WEEK, ALTERNATING WITH 7.5 MG THREE TIMES A WEEK.
     Route: 048

REACTIONS (1)
  - INTERNATIONAL NORMALISED RATIO DECREASED [None]
